FAERS Safety Report 5664156-5 (Version None)
Quarter: 2008Q1

REPORT INFORMATION
  Report Type: 
  Country: None (occurrence: None)
  Receive Date: 20080314
  Receipt Date: 20080314
  Transmission Date: 20080703
  Serious: Yes (Other)
  Sender: FDA-Public Use
  Company Number: None

PATIENT
  Age: 45 Year
  Sex: Female
  Weight: 56.6996 kg

DRUGS (4)
  1. HEPARIN [Suspect]
     Indication: MUSCLE INJURY
     Dosage: INJECT PRE-FILLED SYRINGE 2 PER DAY SQ
     Route: 058
     Dates: start: 20070912, end: 20070917
  2. HEPARIN [Suspect]
     Indication: NAUSEA
     Dosage: INJECT PRE-FILLED SYRINGE 2 PER DAY SQ
     Route: 058
     Dates: start: 20070912, end: 20070917
  3. HEPARIN [Suspect]
     Indication: THROMBOSIS
     Dosage: INJECT PRE-FILLED SYRINGE 2 PER DAY SQ
     Route: 058
     Dates: start: 20070912, end: 20070917
  4. HEPARIN [Suspect]
     Indication: VOMITING
     Dosage: INJECT PRE-FILLED SYRINGE 2 PER DAY SQ
     Route: 058
     Dates: start: 20070912, end: 20070917

REACTIONS (5)
  - FATIGUE [None]
  - HEPATIC FAILURE [None]
  - MALAISE [None]
  - STOMACH DISCOMFORT [None]
  - THERAPEUTIC PRODUCT CONTAMINATION [None]
